FAERS Safety Report 10085278 (Version 1)
Quarter: 2014Q2

REPORT INFORMATION
  Report Type: Spontaneous
  Country: US (occurrence: US)
  Receive Date: 20140417
  Receipt Date: 20140417
  Transmission Date: 20141212
  Serious: No
  Sender: FDA-Public Use
  Company Number: US-GILEAD-2014-0099895

PATIENT
  Age: 18 Year
  Sex: Female

DRUGS (2)
  1. LETAIRIS [Suspect]
     Indication: PULMONARY HYPERTENSION
     Route: 065
     Dates: start: 20130822, end: 20140401
  2. REMODULIN [Concomitant]
     Indication: PULMONARY HYPERTENSION
     Dates: start: 20130820

REACTIONS (1)
  - Hepatic enzyme increased [Unknown]
